FAERS Safety Report 23731297 (Version 2)
Quarter: 2024Q3

REPORT INFORMATION
  Report Type: Report from Study
  Country: DE (occurrence: DE)
  Receive Date: 20240411
  Receipt Date: 20240801
  Transmission Date: 20241017
  Serious: No
  Sender: ROCHE
  Company Number: DE-ROCHE-2428882

PATIENT
  Age: 53 Year
  Sex: Female

DRUGS (12)
  1. OCREVUS [Suspect]
     Active Substance: OCRELIZUMAB
     Indication: Relapsing-remitting multiple sclerosis
     Dosage: DATE OF THE 8TH MAINTENANCE DOSE: 17/AUG/2022?600 MG 168 DAYS
     Route: 042
     Dates: start: 20181001
  2. OCREVUS [Suspect]
     Active Substance: OCRELIZUMAB
     Dosage: 600 MG EVERY 189 DAYS
     Route: 042
     Dates: start: 201902
  3. OCREVUS [Suspect]
     Active Substance: OCRELIZUMAB
     Route: 042
     Dates: start: 20200325
  4. OCREVUS [Suspect]
     Active Substance: OCRELIZUMAB
     Dosage: 10TH MAINTENANCE DOSE ON 19/JUL/2023
     Route: 042
     Dates: start: 20210217
  5. CORTISONE [Suspect]
     Active Substance: CORTISONE
     Indication: Premedication
     Dosage: TEMPORARILY FOR THE PATIENT^S BACK
     Route: 065
  6. COMIRNATY (TOZINAMERAN) [Suspect]
     Active Substance: TOZINAMERAN
     Indication: COVID-19 immunisation
     Route: 065
  7. COMIRNATY (TOZINAMERAN) [Suspect]
     Active Substance: TOZINAMERAN
     Route: 065
     Dates: start: 20210601
  8. ACETAMINOPHEN [Concomitant]
     Active Substance: ACETAMINOPHEN
  9. NABIXIMOLS [Concomitant]
     Active Substance: NABIXIMOLS
  10. DICLOFENAC [Concomitant]
     Active Substance: DICLOFENAC
  11. SERTRALINE [Concomitant]
     Active Substance: SERTRALINE HYDROCHLORIDE
  12. PROPIONIC ACID [Concomitant]
     Active Substance: PROPIONIC ACID

REACTIONS (25)
  - Pain in extremity [Recovered/Resolved]
  - Influenza like illness [Recovered/Resolved]
  - Dizziness [Not Recovered/Not Resolved]
  - Nausea [Not Recovered/Not Resolved]
  - Taste disorder [Recovered/Resolved]
  - Muscular weakness [Recovered/Resolved]
  - Fatigue [Recovered/Resolved]
  - Chest discomfort [Not Recovered/Not Resolved]
  - Therapeutic product effect decreased [Unknown]
  - Cyst [Recovered/Resolved]
  - Back pain [Recovering/Resolving]
  - Asthenia [Recovering/Resolving]
  - Gait disturbance [Recovered/Resolved]
  - Dizziness [Not Recovered/Not Resolved]
  - Bursitis [Recovered/Resolved]
  - Listless [Recovered/Resolved]
  - Meniscus injury [Recovered/Resolved]
  - Scar pain [Recovered/Resolved]
  - Hypokinesia [Recovered/Resolved]
  - Disturbance in attention [Recovered/Resolved]
  - Fatigue [Recovered/Resolved]
  - Influenza [Recovered/Resolved]
  - Decreased appetite [Recovering/Resolving]
  - Cough [Recovering/Resolving]
  - White blood cell count increased [Recovered/Resolved]

NARRATIVE: CASE EVENT DATE: 20181001
